FAERS Safety Report 20105508 (Version 1)
Quarter: 2021Q4

REPORT INFORMATION
  Report Type: Spontaneous
  Country: US (occurrence: US)
  Receive Date: 20211124
  Receipt Date: 20211124
  Transmission Date: 20220303
  Serious: No
  Sender: FDA-Public Use
  Company Number: US-AMGEN-USASP2021184533

PATIENT
  Age: 42 Year
  Sex: Female

DRUGS (4)
  1. ENBREL [Suspect]
     Active Substance: ETANERCEPT
     Indication: Rheumatoid arthritis
     Dosage: 50 MILLIGRAM, QWK
     Route: 058
     Dates: start: 2021
  2. HUMIRA [Suspect]
     Active Substance: ADALIMUMAB
     Indication: Rheumatoid arthritis
     Dosage: UNK UNK, Q2WK
     Route: 058
     Dates: start: 201908
  3. METHOTREXATE [Concomitant]
     Active Substance: METHOTREXATE
  4. FOLIC ACID [Concomitant]
     Active Substance: FOLIC ACID

REACTIONS (6)
  - Nausea [Unknown]
  - Weight decreased [Unknown]
  - Fatigue [Unknown]
  - Dyspnoea [Unknown]
  - Urticaria [Unknown]
  - Injection site urticaria [Unknown]

NARRATIVE: CASE EVENT DATE: 20210101
